FAERS Safety Report 14031739 (Version 1)
Quarter: 2017Q4

REPORT INFORMATION
  Report Type: Spontaneous
  Country: US (occurrence: US)
  Receive Date: 20171002
  Receipt Date: 20171002
  Transmission Date: 20180321
  Serious: No
  Sender: FDA-Public Use
  Company Number: US-GALDERMA-US17003410

PATIENT
  Sex: Female

DRUGS (2)
  1. EXCIPIAL RAPID REPAIR HAND CREAM [Suspect]
     Active Substance: COSMETICS
     Route: 061
  2. METROCREAM [Suspect]
     Active Substance: METRONIDAZOLE
     Indication: ROSACEA
     Route: 061

REACTIONS (1)
  - Eye irritation [Unknown]
